APPROVED DRUG PRODUCT: AZATHIOPRINE
Active Ingredient: AZATHIOPRINE
Strength: 50MG
Dosage Form/Route: TABLET;ORAL
Application: A075568 | Product #001 | TE Code: AB
Applicant: RISING PHARMA HOLDINGS INC
Approved: Dec 13, 1999 | RLD: No | RS: No | Type: RX